FAERS Safety Report 5371971-4 (Version None)
Quarter: 2007Q2

REPORT INFORMATION
  Report Type: 
  Country: None (occurrence: None)
  Receive Date: 20070627
  Receipt Date: 20070620
  Transmission Date: 20071010
  Serious: Yes (Hospitalization)
  Sender: FDA-Public Use
  Company Number: FR-ASTRAZENECA-2007CG00945

PATIENT
  Age: 69 Year
  Sex: Female

DRUGS (4)
  1. PULMICORT [Suspect]
     Route: 055
  2. CORTANCYL [Suspect]
     Route: 048
  3. ARAVA [Suspect]
     Route: 048
     Dates: end: 20070418
  4. HUMIRA [Suspect]
     Route: 058
     Dates: end: 20070215

REACTIONS (4)
  - ARTHRITIS BACTERIAL [None]
  - CONDITION AGGRAVATED [None]
  - KLEBSIELLA INFECTION [None]
  - SKIN NECROSIS [None]
